FAERS Safety Report 14728048 (Version 2)
Quarter: 2018Q4

REPORT INFORMATION
  Report Type: Spontaneous
  Country: US (occurrence: US)
  Receive Date: 20180406
  Receipt Date: 20181218
  Transmission Date: 20190204
  Serious: Yes (Other)
  Sender: FDA-Public Use
  Company Number: US-ASTRAZENECA-2018SE40886

PATIENT
  Age: 27071 Day
  Sex: Male
  Weight: 74.8 kg

DRUGS (48)
  1. PREVACID [Suspect]
     Active Substance: LANSOPRAZOLE
     Route: 065
     Dates: start: 199201, end: 200801
  2. VITAMIN D [Concomitant]
     Active Substance: CHOLECALCIFEROL
     Indication: ROUTINE HEALTH MAINTENANCE
     Dosage: 1000 UNITS TWO TIMES DAILY.
     Dates: start: 20150714
  3. ALKA-SELTZER [Concomitant]
     Active Substance: ANHYDROUS CITRIC ACID\ASPIRIN\SODIUM BICARBONATE
  4. ROLAIDS [Concomitant]
     Active Substance: CALCIUM CARBONATE\MAGNESIUM HYDROXIDE
  5. MAALOX ANTACID [Concomitant]
     Active Substance: ALUMINUM HYDROXIDE\DIMETHICONE\MAGNESIUM HYDROXIDE
  6. HEPARIN [Concomitant]
     Active Substance: HEPARIN SODIUM
     Dosage: 5000 UNITS
  7. NEXIUM [Suspect]
     Active Substance: ESOMEPRAZOLE MAGNESIUM
     Route: 048
     Dates: start: 199201, end: 200801
  8. DOXYCYCLINE. [Concomitant]
     Active Substance: DOXYCYCLINE
     Indication: ANTIBIOTIC THERAPY
     Dates: start: 20160624, end: 20161201
  9. LISINOPRIL. [Concomitant]
     Active Substance: LISINOPRIL
     Indication: HYPERTENSION
     Dates: start: 20150413, end: 20160818
  10. COREG [Concomitant]
     Active Substance: CARVEDILOL
  11. AMARYL [Concomitant]
     Active Substance: GLIMEPIRIDE
     Dosage: BEFORE MEALS
  12. ZOFRAN [Concomitant]
     Active Substance: ONDANSETRON HYDROCHLORIDE
     Dosage: 4 MG
  13. CALCITRIOL. [Concomitant]
     Active Substance: CALCITRIOL
     Dosage: 0.25 MCG
  14. LIPITOR [Concomitant]
     Active Substance: ATORVASTATIN CALCIUM
  15. CALCIUM [Concomitant]
     Active Substance: CALCIUM
  16. ASPIRIN. [Concomitant]
     Active Substance: ASPIRIN
     Indication: PAIN
     Dates: start: 20150714
  17. CALCIUM CARBONATE. [Concomitant]
     Active Substance: CALCIUM CARBONATE
  18. MAGNESIUM SULFATE. [Concomitant]
     Active Substance: MAGNESIUM SULFATE
  19. NEXIUM 24HR [Suspect]
     Active Substance: ESOMEPRAZOLE MAGNESIUM
     Route: 048
     Dates: start: 199201, end: 200801
  20. DEXILANT [Suspect]
     Active Substance: DEXLANSOPRAZOLE
     Route: 065
     Dates: start: 199201, end: 200801
  21. PEPTO-BISMOL [Concomitant]
     Active Substance: BISMUTH SUBSALICYLATE
  22. TAGAMET [Concomitant]
     Active Substance: CIMETIDINE
     Dates: start: 2006, end: 2011
  23. CALCIUM ACETATE. [Concomitant]
     Active Substance: CALCIUM ACETATE
  24. REGLAN [Concomitant]
     Active Substance: METOCLOPRAMIDE HYDROCHLORIDE
  25. PROCRIT [Concomitant]
     Active Substance: ERYTHROPOIETIN
     Dosage: 10000 UNITS
  26. LIDOCAINE. [Concomitant]
     Active Substance: LIDOCAINE
  27. AMLODIPINE BESYLATE. [Concomitant]
     Active Substance: AMLODIPINE BESYLATE
  28. CINACALCET. [Concomitant]
     Active Substance: CINACALCET
  29. CIMETIDINE [Concomitant]
     Active Substance: CIMETIDINE
  30. TYLENOL [Concomitant]
     Active Substance: ACETAMINOPHEN
     Dosage: 650 MG
  31. SEVELAMER [Concomitant]
     Active Substance: SEVELAMER
  32. VITAMIN D3 [Concomitant]
     Active Substance: CHOLECALCIFEROL
     Dosage: 1000 UNIT
  33. CLOTRIMAZOLE. [Concomitant]
     Active Substance: CLOTRIMAZOLE
  34. PRILOSEC OTC [Suspect]
     Active Substance: OMEPRAZOLE MAGNESIUM
     Indication: GASTROOESOPHAGEAL REFLUX DISEASE
     Route: 048
     Dates: start: 199201, end: 200801
  35. PROTONIX [Suspect]
     Active Substance: PANTOPRAZOLE SODIUM
     Route: 065
     Dates: start: 199201, end: 200801
  36. NORVASC [Concomitant]
     Active Substance: AMLODIPINE BESYLATE
  37. NIZORAL [Concomitant]
     Active Substance: KETOCONAZOLE
     Dosage: APPLY TOPICALLY 2 (TWO) TIMES DAILY
  38. SYNTHROID [Concomitant]
     Active Substance: LEVOTHYROXINE SODIUM
     Dosage: 25 MCG DAILY BEFORE BREAKFAST.
  39. NOVOLOG [Concomitant]
     Active Substance: INSULIN ASPART
     Dosage: 0-3 UNITS
  40. COLCHICINE. [Concomitant]
     Active Substance: COLCHICINE
  41. FOSINOPRIL [Concomitant]
     Active Substance: FOSINOPRIL
  42. LANTHANUM CARBONATE. [Concomitant]
     Active Substance: LANTHANUM CARBONATE
  43. PRILOSEC [Suspect]
     Active Substance: OMEPRAZOLE MAGNESIUM
     Route: 048
     Dates: start: 199201, end: 200801
  44. PRILOSEC OTC [Suspect]
     Active Substance: OMEPRAZOLE MAGNESIUM
     Indication: GASTROOESOPHAGEAL REFLUX DISEASE
     Route: 048
     Dates: start: 2006, end: 2011
  45. ALLOPURINOL. [Concomitant]
     Active Substance: ALLOPURINOL
     Indication: GOUT
     Dates: start: 20150724
  46. FUROSEMIDE. [Concomitant]
     Active Substance: FUROSEMIDE
     Indication: HYPERTENSION
     Dates: start: 20160622, end: 20180527
  47. FISH OIL [Concomitant]
     Active Substance: FISH OIL
  48. GLIPIZIDE. [Concomitant]
     Active Substance: GLIPIZIDE

REACTIONS (5)
  - Acute kidney injury [Not Recovered/Not Resolved]
  - End stage renal disease [Unknown]
  - Renal failure [Unknown]
  - Nephrogenic anaemia [Unknown]
  - Chronic kidney disease [Not Recovered/Not Resolved]

NARRATIVE: CASE EVENT DATE: 20150413
